FAERS Safety Report 24836825 (Version 2)
Quarter: 2025Q1

REPORT INFORMATION
  Report Type: Spontaneous
  Country: PL (occurrence: PL)
  Receive Date: 20250113
  Receipt Date: 20250121
  Transmission Date: 20250409
  Serious: Yes (Hospitalization, Other)
  Sender: MYLAN
  Company Number: None

PATIENT
  Age: 21 Year
  Sex: Male

DRUGS (5)
  1. ISOTRETINOIN [Suspect]
     Active Substance: ISOTRETINOIN
     Indication: Acne
     Dosage: 20 MILLIGRAM, QD
     Route: 048
  2. ISOTRETINOIN [Suspect]
     Active Substance: ISOTRETINOIN
     Dosage: 60 MILLIGRAM, QD (DOSE INCREASED)
     Route: 048
  3. ISOTRETINOIN [Suspect]
     Active Substance: ISOTRETINOIN
     Route: 048
  4. TESTOSTERONE [Suspect]
     Active Substance: TESTOSTERONE
     Indication: Weight decreased
     Dosage: 500 MILLIGRAM, QW
     Route: 030
  5. TESTOSTERONE [Suspect]
     Active Substance: TESTOSTERONE
     Indication: Muscle atrophy

REACTIONS (4)
  - Staphylococcal infection [Recovering/Resolving]
  - Acne fulminans [Recovering/Resolving]
  - Incorrect dose administered [Unknown]
  - Inappropriate schedule of product administration [Unknown]
